FAERS Safety Report 5246606-1 (Version None)
Quarter: 2007Q1

REPORT INFORMATION
  Report Type: 
  Country: None (occurrence: None)
  Receive Date: 20070222
  Receipt Date: 20070222
  Transmission Date: 20070707
  Serious: Yes (Hospitalization)
  Sender: FDA-Public Use
  Company Number: None

PATIENT
  Sex: Male

DRUGS (1)
  1. TRILEPTAL [Suspect]
     Indication: ATTENTION DEFICIT/HYPERACTIVITY DISORDER
     Dosage: 300 MG  TWICE DAILY  PO
     Route: 048
     Dates: start: 20060828, end: 20060901

REACTIONS (6)
  - DROOLING [None]
  - DYSTONIA [None]
  - MUSCULOSKELETAL STIFFNESS [None]
  - SIMILAR REACTION ON PREVIOUS EXPOSURE TO DRUG [None]
  - SOMNOLENCE [None]
  - TREMOR [None]
